FAERS Safety Report 11696002 (Version 1)
Quarter: 2015Q4

REPORT INFORMATION
  Report Type: Spontaneous
  Country: US (occurrence: None)
  Receive Date: 20151103
  Receipt Date: 20151103
  Transmission Date: 20160304
  Serious: Yes (Hospitalization)
  Sender: FDA-Public Use
  Company Number: None

PATIENT
  Age: 79 Year
  Sex: Female
  Weight: 80.4 kg

DRUGS (2)
  1. FERUMOXYTOL [Suspect]
     Active Substance: FERUMOXYTOL
     Indication: CHRONIC KIDNEY DISEASE
     Route: 042
  2. FERUMOXYTOL [Suspect]
     Active Substance: FERUMOXYTOL
     Indication: IRON DEFICIENCY ANAEMIA
     Route: 042

REACTIONS (7)
  - Vomiting [None]
  - Dyspnoea [None]
  - Presyncope [None]
  - Chest pain [None]
  - Hypotension [None]
  - Nausea [None]
  - Retching [None]

NARRATIVE: CASE EVENT DATE: 20151015
